FAERS Safety Report 6015592-9 (Version None)
Quarter: 2008Q4

REPORT INFORMATION
  Report Type: 
  Country: None (occurrence: None)
  Receive Date: 20081222
  Receipt Date: 20081212
  Transmission Date: 20090506
  Serious: No
  Sender: FDA-Public Use
  Company Number: CA-ASTRAZENECA-2008UW27930

PATIENT
  Age: 79 Year
  Sex: Male

DRUGS (5)
  1. CRESTOR [Suspect]
     Indication: HYPERCHOLESTEROLAEMIA
     Route: 048
     Dates: start: 20080601
  2. MULTI-VITAMIN [Concomitant]
     Indication: MACULAR DEGENERATION
     Dosage: 1 TAB DAILY
     Route: 048
  3. FERROUS SULFATE TAB [Concomitant]
     Indication: BLOOD DISORDER
     Dosage: 900 MG
     Route: 048
  4. ARICEPT [Concomitant]
     Indication: MEMORY IMPAIRMENT
     Dosage: 10 MG
     Route: 048
  5. WARFARIN SODIUM [Concomitant]
     Indication: BLOOD DISORDER
     Route: 048

REACTIONS (1)
  - MYALGIA [None]
